FAERS Safety Report 16589391 (Version 2)
Quarter: 2019Q3

REPORT INFORMATION
  Report Type: Report from Study
  Country: CZ (occurrence: CZ)
  Receive Date: 20190718
  Receipt Date: 20190722
  Transmission Date: 20191004
  Serious: Yes (Hospitalization)
  Sender: FDA-Public Use
  Company Number: CZ-BIOGEN-2019BI00757639

PATIENT
  Age: 39 Year
  Sex: Male
  Weight: 106 kg

DRUGS (2)
  1. VIGANTOL [Concomitant]
     Indication: PRODUCT USED FOR UNKNOWN INDICATION
     Dosage: 35 DROPS ON WEDNESDAY
     Route: 065
  2. TYSABRI [Suspect]
     Active Substance: NATALIZUMAB
     Indication: PRODUCT USED FOR UNKNOWN INDICATION
     Route: 065
     Dates: start: 20180522

REACTIONS (1)
  - Cellulitis staphylococcal [Not Recovered/Not Resolved]

NARRATIVE: CASE EVENT DATE: 20190620
